FAERS Safety Report 25375296 (Version 1)
Quarter: 2025Q2

REPORT INFORMATION
  Report Type: Spontaneous
  Country: DE (occurrence: DE)
  Receive Date: 20250529
  Receipt Date: 20250529
  Transmission Date: 20250716
  Serious: Yes (Other)
  Sender: BridgeBio Pharma
  Company Number: DE-BAYER-2025A066787

PATIENT
  Sex: Female

DRUGS (1)
  1. ACORAMIDIS [Suspect]
     Active Substance: ACORAMIDIS
     Indication: Acquired ATTR amyloidosis
     Dosage: 800 MG, BID
     Route: 048

REACTIONS (1)
  - Diarrhoea [Recovered/Resolved]
